FAERS Safety Report 8013689-5 (Version None)
Quarter: 2011Q4

REPORT INFORMATION
  Report Type: 
  Country: None (occurrence: None)
  Receive Date: 20111229
  Receipt Date: 20111221
  Transmission Date: 20120403
  Serious: Yes (Hospitalization)
  Sender: FDA-Public Use
  Company Number: US-BAYER-2011-027292

PATIENT
  Age: 20 Year
  Sex: Female

DRUGS (2)
  1. YAZ [Suspect]
     Indication: PREMENSTRUAL SYNDROME
     Dosage: UNK
     Route: 048
     Dates: start: 20060601, end: 20100401
  2. YAZ [Suspect]
     Indication: DYSMENORRHOEA
     Dosage: UNK
     Dates: start: 20101101, end: 20101201

REACTIONS (12)
  - NAUSEA [None]
  - BILE DUCT STONE [None]
  - PANCREATITIS [None]
  - ABDOMINAL PAIN UPPER [None]
  - BILE DUCT OBSTRUCTION [None]
  - FEAR [None]
  - SEPSIS [None]
  - DEPRESSION POSTOPERATIVE [None]
  - CHOLELITHIASIS [None]
  - PAIN [None]
  - VOMITING [None]
  - SCAR [None]
